FAERS Safety Report 4619553-3 (Version None)
Quarter: 2005Q1

REPORT INFORMATION
  Report Type: 
  Country: None (occurrence: None)
  Receive Date: 20050318
  Receipt Date: 20050318
  Transmission Date: 20050727
  Serious: Yes (Hospitalization)
  Sender: FDA-Public Use
  Company Number: None

PATIENT
  Sex: Female

DRUGS (6)
  1. INSULIN [Suspect]
     Indication: DIABETES MELLITUS
  2. LEVOTHYROXINE [Concomitant]
  3. CARDIZEM [Concomitant]
  4. FOSINOPRIL [Concomitant]
  5. PLAVIX [Concomitant]
  6. ZOCOR [Concomitant]

REACTIONS (2)
  - COMA [None]
  - HYPOGLYCAEMIA [None]
